FAERS Safety Report 19758193 (Version 3)
Quarter: 2022Q3

REPORT INFORMATION
  Report Type: Spontaneous
  Country: US (occurrence: None)
  Receive Date: 20210827
  Receipt Date: 20220921
  Transmission Date: 20221027
  Serious: Yes (Other)
  Sender: FDA-Public Use
  Company Number: 2021A690909

PATIENT
  Age: 24669 Day
  Sex: Female
  Weight: 87.1 kg

DRUGS (58)
  1. NEXIUM [Suspect]
     Active Substance: ESOMEPRAZOLE MAGNESIUM
     Indication: Gastrooesophageal reflux disease
     Route: 048
     Dates: start: 1999, end: 2020
  2. NEXIUM [Suspect]
     Active Substance: ESOMEPRAZOLE MAGNESIUM
     Indication: Gastrooesophageal reflux disease
     Route: 048
     Dates: start: 2001, end: 2020
  3. PRILOSEC [Suspect]
     Active Substance: OMEPRAZOLE MAGNESIUM
     Indication: Gastrooesophageal reflux disease
     Route: 048
     Dates: start: 1999, end: 2020
  4. PRILOSEC [Suspect]
     Active Substance: OMEPRAZOLE MAGNESIUM
     Indication: Gastrooesophageal reflux disease
     Dosage: GENERIC
     Route: 065
     Dates: start: 2001, end: 2019
  5. PRILOSEC [Suspect]
     Active Substance: OMEPRAZOLE MAGNESIUM
     Indication: Gastrooesophageal reflux disease
     Dosage: GENERIC
     Route: 065
     Dates: start: 2010
  6. PRILOSEC OTC [Suspect]
     Active Substance: OMEPRAZOLE MAGNESIUM
     Indication: Gastrooesophageal reflux disease
     Route: 048
     Dates: start: 1999, end: 2020
  7. PRILOSEC OTC [Suspect]
     Active Substance: OMEPRAZOLE MAGNESIUM
     Indication: Gastrooesophageal reflux disease
     Route: 048
     Dates: start: 2003, end: 2020
  8. PREVACID [Suspect]
     Active Substance: LANSOPRAZOLE
     Indication: Gastrooesophageal reflux disease
     Route: 065
     Dates: start: 1999, end: 2020
  9. PREVACID [Suspect]
     Active Substance: LANSOPRAZOLE
     Indication: Gastrooesophageal reflux disease
     Dosage: GENERIC
     Route: 065
     Dates: start: 2009
  10. PREVACID 24 HR [Suspect]
     Active Substance: LANSOPRAZOLE
     Indication: Gastrooesophageal reflux disease
     Route: 065
     Dates: start: 1999, end: 2020
  11. PREVACID 24 HR [Suspect]
     Active Substance: LANSOPRAZOLE
     Indication: Gastrooesophageal reflux disease
     Route: 065
     Dates: start: 2009, end: 2020
  12. PROTONIX [Suspect]
     Active Substance: PANTOPRAZOLE SODIUM
     Indication: Gastrooesophageal reflux disease
     Route: 065
     Dates: start: 2000, end: 2020
  13. LASIX [Concomitant]
     Active Substance: FUROSEMIDE
     Indication: Fluid retention
  14. HYDROCHLOROTHIAZIDE [Concomitant]
     Active Substance: HYDROCHLOROTHIAZIDE
     Indication: Fluid retention
  15. ALLOPURINOL [Concomitant]
     Active Substance: ALLOPURINOL
     Indication: Gout
  16. ATORVASTATIN [Concomitant]
     Active Substance: ATORVASTATIN
     Indication: Blood cholesterol abnormal
  17. BARIUM SULFATE [Concomitant]
     Active Substance: BARIUM SULFATE
  18. ZOFRAN [Concomitant]
     Active Substance: ONDANSETRON HYDROCHLORIDE
  19. ULTRAM [Concomitant]
     Active Substance: TRAMADOL HYDROCHLORIDE
  20. SYSTOLIC [Concomitant]
  21. ACETAMINOPHEN [Concomitant]
     Active Substance: ACETAMINOPHEN
  22. CLONIDINE [Concomitant]
     Active Substance: CLONIDINE
  23. NEURONTIN [Concomitant]
     Active Substance: GABAPENTIN
  24. TRIAMTERENCE-HCTZ [Concomitant]
  25. TIZANIDINE HYDROCHLORIDE [Concomitant]
     Active Substance: TIZANIDINE HYDROCHLORIDE
  26. CYMBALTA [Concomitant]
     Active Substance: DULOXETINE HYDROCHLORIDE
  27. SYNTHROID [Concomitant]
     Active Substance: LEVOTHYROXINE SODIUM
  28. AUGMENTIN [Concomitant]
     Active Substance: AMOXICILLIN\CLAVULANATE POTASSIUM
  29. FLUTICASONE PROPIONATE [Concomitant]
     Active Substance: FLUTICASONE PROPIONATE
  30. CARVEDILOL [Concomitant]
     Active Substance: CARVEDILOL
  31. TRAZODONE HYDROCHLORIDE [Concomitant]
     Active Substance: TRAZODONE HYDROCHLORIDE
  32. PROAIR HFA [Concomitant]
     Active Substance: ALBUTEROL SULFATE
  33. BUSPIRONE HYDROCHLORIDE [Concomitant]
     Active Substance: BUSPIRONE HYDROCHLORIDE
  34. MACROBID [Concomitant]
     Active Substance: NITROFURANTOIN\NITROFURANTOIN MONOHYDRATE
  35. NYSTATIN [Concomitant]
     Active Substance: NYSTATIN
  36. METROCARBAMOL [Concomitant]
  37. MEDROL [Concomitant]
     Active Substance: METHYLPREDNISOLONE
  38. ASPIRIN [Concomitant]
     Active Substance: ASPIRIN
  39. BUTALBITAL-ACTEAMINOPHEN [Concomitant]
  40. CALCIUM CARBONATE [Concomitant]
     Active Substance: CALCIUM CARBONATE
  41. VITAMIN B12 [Concomitant]
     Active Substance: CYANOCOBALAMIN
  42. DIAZEPAM [Concomitant]
     Active Substance: DIAZEPAM
  43. DIPHENHYDRAMINE [Concomitant]
     Active Substance: DIPHENHYDRAMINE
  44. LOPERAMIDE [Concomitant]
     Active Substance: LOPERAMIDE
  45. LISINOPRIL [Concomitant]
     Active Substance: LISINOPRIL
  46. VITAMINS [Concomitant]
     Active Substance: VITAMINS
  47. POTASSIUM GLUCONATE [Concomitant]
     Active Substance: POTASSIUM GLUCONATE
  48. MORPHINE SULFATE [Concomitant]
     Active Substance: MORPHINE SULFATE
  49. HEPARIN [Concomitant]
     Active Substance: HEPARIN SODIUM
  50. TRAMADOL [Concomitant]
     Active Substance: TRAMADOL
     Indication: Pain
  51. AXID [Concomitant]
     Active Substance: NIZATIDINE
  52. CIMETIDINE [Concomitant]
     Active Substance: CIMETIDINE
  53. DUEXIS [Concomitant]
     Active Substance: FAMOTIDINE\IBUPROFEN
  54. NIZATIDINE [Concomitant]
     Active Substance: NIZATIDINE
  55. PEPCID [Concomitant]
     Active Substance: FAMOTIDINE
  56. IMODIUM [Concomitant]
     Active Substance: LOPERAMIDE HYDROCHLORIDE
  57. TUMS [Concomitant]
     Active Substance: CALCIUM CARBONATE
  58. GAVISCON [Concomitant]
     Active Substance: ALUMINUM HYDROXIDE\MAGNESIUM CARBONATE

REACTIONS (4)
  - Chronic kidney disease [Not Recovered/Not Resolved]
  - Acute kidney injury [Unknown]
  - Renal failure [Unknown]
  - Gastrooesophageal reflux disease [Not Recovered/Not Resolved]

NARRATIVE: CASE EVENT DATE: 20130310
